FAERS Safety Report 10220526 (Version 1)
Quarter: 2014Q2

REPORT INFORMATION
  Report Type: Other
  Country: US (occurrence: US)
  Receive Date: 20140606
  Receipt Date: 20140606
  Transmission Date: 20141212
  Serious: Yes (Death, Hospitalization, Other)
  Sender: FDA-Public Use
  Company Number: US-SHIRE-US201402714

PATIENT
  Sex: Female

DRUGS (2)
  1. FOSRENOL [Suspect]
     Indication: HYPERPHOSPHATAEMIA
     Dosage: 1000 MG (500 MG TWO TABLETS), 3X/DAY:TID (WITH MEALS)
     Route: 048
  2. FOSRENOL [Suspect]
     Dosage: 500 MG (ONE TABLET), 2X/DAY:BID (WITH SNACKS)

REACTIONS (2)
  - Myocardial infarction [Fatal]
  - Hospitalisation [Unknown]
